FAERS Safety Report 8187025 (Version 3)
Quarter: 2013Q2

REPORT INFORMATION
  Report Type: Report from Study
  Country: DE (occurrence: DE)
  Receive Date: 20111018
  Receipt Date: 20130502
  Transmission Date: 20140414
  Serious: Yes (Hospitalization)
  Sender: FDA-Public Use
  Company Number: DE-ELI_LILLY_AND_COMPANY-DE201110001673

PATIENT
  Age: 67 Year
  Sex: Female
  Weight: 52 kg

DRUGS (6)
  1. NECITUMUMAB (11F8) (LY3012211) [Suspect]
     Indication: NON-SMALL CELL LUNG CANCER STAGE IV
     Dosage: 800 MG, EVERY 21 DAYS/CYCLE
     Route: 042
     Dates: start: 20110920
  2. GEMCITABINE HYDROCHLORIDE [Suspect]
     Indication: NON-SMALL CELL LUNG CANCER STAGE IV
     Dosage: 1899 MG, EVERY 21 DAYS/CYCLE
     Route: 042
     Dates: start: 20110920
  3. CISPLATIN [Suspect]
     Indication: NON-SMALL CELL LUNG CANCER STAGE IV
     Dosage: 114 MG, EVERY 21 DAYS/CYCLE
     Dates: start: 20110920
  4. SALBUTAMOL SULFATE [Concomitant]
     Indication: DYSPNOEA
     Dosage: UNK
     Dates: start: 20110909
  5. IPRATROPIUM BROMIDE [Concomitant]
     Indication: DYSPNOEA
     Dosage: UNK
     Dates: start: 20110909
  6. ZOPICLONE [Concomitant]
     Indication: INSOMNIA
     Dosage: UNK
     Dates: start: 20110927

REACTIONS (1)
  - Renal infarct [Recovered/Resolved]
